FAERS Safety Report 5075777-5 (Version None)
Quarter: 2006Q3

REPORT INFORMATION
  Report Type: 
  Country: None (occurrence: None)
  Receive Date: 20060809
  Receipt Date: 20050930
  Transmission Date: 20061208
  Serious: No
  Sender: FDA-Public Use
  Company Number: US-AMGEN-KDL153743

PATIENT
  Sex: Female
  Weight: 72.6 kg

DRUGS (3)
  1. PROCRIT [Suspect]
     Indication: RENAL FAILURE CHRONIC
     Dates: start: 20050920
  2. NORVASC [Concomitant]
  3. LEXAPRO [Concomitant]

REACTIONS (2)
  - BLOOD GLUCOSE INCREASED [None]
  - CONDITION AGGRAVATED [None]
